FAERS Safety Report 10083770 (Version 3)
Quarter: 2014Q2

REPORT INFORMATION
  Report Type: Spontaneous
  Country: AU (occurrence: AU)
  Receive Date: 20140417
  Receipt Date: 20140424
  Transmission Date: 20141212
  Serious: Yes (Life-Threatening, Hospitalization)
  Sender: FDA-Public Use
  Company Number: AU-VERTEX PHARMACEUTICALS INC-2014-001674

PATIENT
  Age: 53 Year
  Sex: Female
  Weight: 59 kg

DRUGS (7)
  1. INCIVO [Suspect]
     Indication: HEPATITIS C
     Dosage: 375 MG, UNK
     Route: 048
     Dates: start: 20140131, end: 20140314
  2. RIBAVIRIN [Suspect]
     Indication: HEPATITIS C
     Dosage: 200 MG, UNK
     Route: 065
     Dates: start: 20140131
  3. RIBAVIRIN [Suspect]
     Dosage: 400 MG, UNK
     Route: 065
  4. RIBAVIRIN [Suspect]
     Dosage: UNK
     Route: 065
     Dates: end: 20140314
  5. PEG-INTERFERON [Suspect]
     Indication: HEPATITIS C
     Dosage: DOSAGE FORM: UNSPECIFIED
     Route: 058
     Dates: start: 20140131, end: 20140314
  6. IRBESARTAN / HYDROCHLOROTHIAZIDE [Concomitant]
     Dosage: 150/12.5 MG
  7. METOCLOPRAMIDE [Concomitant]

REACTIONS (10)
  - Sepsis [Recovered/Resolved]
  - Renal failure acute [Recovered/Resolved]
  - Blood creatinine increased [Recovered/Resolved]
  - Fatigue [Unknown]
  - Headache [Unknown]
  - Mood swings [Unknown]
  - Sputum abnormal [Unknown]
  - Dysgeusia [Unknown]
  - Nausea [Unknown]
  - Rash [Recovering/Resolving]
